FAERS Safety Report 20142009 (Version 1)
Quarter: 2021Q4

REPORT INFORMATION
  Report Type: Spontaneous
  Country: US (occurrence: None)
  Receive Date: 20211202
  Receipt Date: 20211202
  Transmission Date: 20220303
  Serious: Yes (Hospitalization)
  Sender: FDA-Public Use
  Company Number: None

PATIENT
  Age: 75 Year
  Sex: Female

DRUGS (3)
  1. ENBREL [Suspect]
     Active Substance: ETANERCEPT
     Indication: Rheumatoid arthritis
     Dosage: OTHER FREQUENCY : EVERY WEEK;?
     Route: 058
     Dates: start: 20190227
  2. DEVICE [Suspect]
     Active Substance: DEVICE
     Indication: Osteoarthritis
     Dosage: OTHER FREQUENCY : INJECT IN MDOFFICE;?
     Route: 058
     Dates: start: 20210813
  3. ZOLEDRONIC [Concomitant]
     Active Substance: ZOLEDRONIC ACID

REACTIONS (1)
  - Hip surgery [None]

NARRATIVE: CASE EVENT DATE: 20211112
